FAERS Safety Report 25098174 (Version 1)
Quarter: 2025Q1

REPORT INFORMATION
  Report Type: Spontaneous
  Country: US (occurrence: US)
  Receive Date: 20250320
  Receipt Date: 20250320
  Transmission Date: 20250408
  Serious: No
  Sender: ALEXION PHARMACEUTICALS
  Company Number: US-PROCTER+GAMBLE-PH25001563

PATIENT

DRUGS (1)
  1. PRILOSEC OTC [Suspect]
     Active Substance: OMEPRAZOLE MAGNESIUM
     Dosage: 1 TABLET, 1 ONLY, ??-???-2025 00:00

REACTIONS (4)
  - Abdominal pain upper [Unknown]
  - Abdominal pain [Unknown]
  - Dyspepsia [Unknown]
  - Abdominal discomfort [Unknown]
